FAERS Safety Report 10956473 (Version 1)
Quarter: 2015Q1

REPORT INFORMATION
  Report Type: Spontaneous
  Country: None (occurrence: None)
  Receive Date: 20150325
  Receipt Date: 20150325
  Transmission Date: 20150721
  Serious: Yes (Life-Threatening, Hospitalization)
  Sender: FDA-Public Use
  Company Number: None

PATIENT
  Age: 57 Year
  Sex: Female
  Weight: 70 kg

DRUGS (1)
  1. DIGOXIN 125 MCG [Suspect]
     Active Substance: DIGOXIN
     Indication: ATRIAL FIBRILLATION
     Dosage: 125
     Route: 048
     Dates: start: 20150315, end: 20150317

REACTIONS (2)
  - Toxicity to various agents [None]
  - Acute kidney injury [None]

NARRATIVE: CASE EVENT DATE: 20150317
